FAERS Safety Report 5296128-7 (Version None)
Quarter: 2007Q2

REPORT INFORMATION
  Report Type: 
  Country: None (occurrence: None)
  Receive Date: 20070406
  Receipt Date: 20070322
  Transmission Date: 20071010
  Serious: Yes (Hospitalization)
  Sender: FDA-Public Use
  Company Number: FSC_0071-2007

PATIENT
  Age: 74 Year
  Sex: Female
  Weight: 45 kg

DRUGS (4)
  1. ISOPTIN [Suspect]
     Indication: HYPERTENSION
     Dosage: 80 MG QDAY PO
     Route: 048
     Dates: start: 19970101, end: 20070219
  2. ISOPTIN [Suspect]
     Indication: HYPERTENSION
     Dosage: 80 MG 2X/DAY PO
     Route: 048
     Dates: start: 20070220, end: 20070315
  3. DIGITOXIN TAB [Concomitant]
  4. LETROZOLE [Concomitant]

REACTIONS (2)
  - COUGH [None]
  - DYSPNOEA [None]
